FAERS Safety Report 20018768 (Version 1)
Quarter: 2021Q4

REPORT INFORMATION
  Report Type: Spontaneous
  Country: US (occurrence: US)
  Receive Date: 20211101
  Receipt Date: 20211101
  Transmission Date: 20220303
  Serious: Yes (Life-Threatening, Hospitalization)
  Sender: FDA-Public Use
  Company Number: US-drreddys-SPO/USA/21/0143293

PATIENT
  Age: 39 Year
  Sex: Male

DRUGS (2)
  1. ESTRADIOL CYPIONATE [Suspect]
     Active Substance: ESTRADIOL CYPIONATE
     Indication: Paraphilia
  2. DUTASTERIDE [Suspect]
     Active Substance: DUTASTERIDE
     Indication: Paraphilia

REACTIONS (2)
  - Pulmonary embolism [Recovered/Resolved]
  - Self-medication [Recovered/Resolved]
